FAERS Safety Report 25803168 (Version 1)
Quarter: 2025Q3

REPORT INFORMATION
  Report Type: Report from Study
  Country: US (occurrence: US)
  Receive Date: 20250915
  Receipt Date: 20250915
  Transmission Date: 20251020
  Serious: Yes (Other)
  Sender: TEVA
  Company Number: US-TEVA-VS-3370721

PATIENT
  Age: 42 Year
  Sex: Female

DRUGS (1)
  1. AUSTEDO XR [Suspect]
     Active Substance: DEUTETRABENAZINE
     Indication: Huntington^s disease
     Dosage: ONCE DAILY
     Route: 048
     Dates: start: 20250129

REACTIONS (2)
  - Anger [Unknown]
  - Suicide attempt [Unknown]

NARRATIVE: CASE EVENT DATE: 20250101
